FAERS Safety Report 25230044 (Version 1)
Quarter: 2025Q2

REPORT INFORMATION
  Report Type: Spontaneous
  Country: US (occurrence: None)
  Receive Date: 20250422
  Receipt Date: 20250422
  Transmission Date: 20250717
  Serious: Yes (Other)
  Sender: FDA-CTU
  Company Number: None

PATIENT
  Age: 73 Year
  Sex: Female
  Weight: 82.8 kg

DRUGS (17)
  1. CAPECITABINE [Suspect]
     Active Substance: CAPECITABINE
     Indication: Appendix cancer
     Dosage: FREQUENCY : TWICE A DAY;?
     Route: 048
     Dates: start: 20250303, end: 20250415
  2. Potassium Citrate ER 15 mg [Concomitant]
  3. GABAPENTIN [Concomitant]
     Active Substance: GABAPENTIN
  4. CITALOPRAM [Concomitant]
     Active Substance: CITALOPRAM
  5. DOXYCYCLINE [Concomitant]
     Active Substance: DOXYCYCLINE
  6. METHOCARBAMOL [Concomitant]
     Active Substance: METHOCARBAMOL
  7. Rybelsus 1.5 mg [Concomitant]
  8. HYDROCHLOROTHIAZIDE\TRIAMTERENE [Concomitant]
     Active Substance: HYDROCHLOROTHIAZIDE\TRIAMTERENE
  9. MYRBETRIQ [Concomitant]
     Active Substance: MIRABEGRON
  10. XARELTO [Concomitant]
     Active Substance: RIVAROXABAN
  11. PIOGLITAZONE HYDROCHLORIDE [Concomitant]
     Active Substance: PIOGLITAZONE HYDROCHLORIDE
  12. ROSUVASTATIN [Concomitant]
     Active Substance: ROSUVASTATIN
  13. Mounjaro 2.5 mg/0.5 ml [Concomitant]
  14. Flax Seed Oil 1000 mg Caps [Concomitant]
  15. OMEPRAZOLE [Concomitant]
     Active Substance: OMEPRAZOLE
  16. Niacin 50 mg tabs [Concomitant]
  17. Vitamin D3 50000 UT caps [Concomitant]

REACTIONS (4)
  - Rash macular [None]
  - Skin exfoliation [None]
  - Limb discomfort [None]
  - Limb discomfort [None]

NARRATIVE: CASE EVENT DATE: 20250422
